FAERS Safety Report 14598562 (Version 1)
Quarter: 2018Q1

REPORT INFORMATION
  Report Type: Spontaneous
  Country: US (occurrence: US)
  Receive Date: 20180302
  Receipt Date: 20180302
  Transmission Date: 20180509
  Serious: Yes (Life-Threatening, Hospitalization)
  Sender: FDA-Public Use
  Company Number: None

PATIENT
  Age: 59 Year
  Sex: Male
  Weight: 67.4 kg

DRUGS (4)
  1. OPDIVO [Suspect]
     Active Substance: NIVOLUMAB
     Indication: METASTASIS
     Route: 041
  2. OPDIVO [Suspect]
     Active Substance: NIVOLUMAB
     Indication: ADENOCARCINOMA
     Route: 041
  3. OPDIVO [Concomitant]
     Active Substance: NIVOLUMAB
  4. OPDIVO [Suspect]
     Active Substance: NIVOLUMAB
     Indication: RECURRENT CANCER
     Route: 041

REACTIONS (5)
  - Lung neoplasm malignant [None]
  - Dyspnoea [None]
  - Pneumonitis [None]
  - Pneumonia [None]
  - Malignant neoplasm progression [None]

NARRATIVE: CASE EVENT DATE: 20180226
